FAERS Safety Report 8414475-4 (Version None)
Quarter: 2012Q2

REPORT INFORMATION
  Report Type: 
  Country: None (occurrence: None)
  Receive Date: 20120605
  Receipt Date: 20120531
  Transmission Date: 20120825
  Serious: Yes (Hospitalization, Other)
  Sender: FDA-Public Use
  Company Number: AU-B.I. PHARMACEUTICALS,INC./RIDGEFIELD-2012-AU-00283AU

PATIENT
  Sex: Male

DRUGS (11)
  1. PRADAXA [Suspect]
     Indication: ATRIAL FIBRILLATION
     Dosage: 220 MG
     Dates: start: 20110706, end: 20111201
  2. PANADOL OSTEO [Concomitant]
     Dosage: 2 DAILY
  3. FUROSEMIDE [Concomitant]
     Dosage: 80 MG
  4. PRADAXA [Suspect]
     Indication: CEREBROVASCULAR ACCIDENT
  5. LIPITOR [Concomitant]
     Dosage: 20 MG
  6. METOPROLOL TARTRATE [Concomitant]
     Dosage: 12.5 MG
     Dates: end: 20111201
  7. TRANSDERM-NITRO [Concomitant]
  8. INDOPRIL [Concomitant]
     Dosage: 2 MG
     Dates: end: 20111201
  9. OSTEVIT D [Concomitant]
     Dosage: 1 MANE
  10. SERTRA [Concomitant]
     Dosage: 50 MG
  11. FUROSEMIDE [Concomitant]
     Dosage: 40 MG

REACTIONS (5)
  - FALL [None]
  - GASTROINTESTINAL HAEMORRHAGE [None]
  - CEREBROVASCULAR ACCIDENT [None]
  - RENAL IMPAIRMENT [None]
  - HAEMOGLOBIN DECREASED [None]
